FAERS Safety Report 11820016 (Version 1)
Quarter: 2015Q4

REPORT INFORMATION
  Report Type: Spontaneous
  Country: US (occurrence: None)
  Receive Date: 20151209
  Receipt Date: 20151209
  Transmission Date: 20160305
  Serious: No
  Sender: FDA-Public Use
  Company Number: None

PATIENT
  Age: 44 Year
  Sex: Male
  Weight: 46.5 kg

DRUGS (17)
  1. ONDANSETRONE [Concomitant]
     Active Substance: ONDANSETRON
  2. HYDRALAZINE [Concomitant]
     Active Substance: HYDRALAZINE HYDROCHLORIDE
  3. LABETOLOL [Concomitant]
     Active Substance: LABETALOL HYDROCHLORIDE
  4. DIPHENHYDRAMINE. [Concomitant]
     Active Substance: DIPHENHYDRAMINE
  5. TACROLIMUS 0.5 [Suspect]
     Active Substance: TACROLIMUS
     Indication: RENAL TRANSPLANT
     Route: 048
     Dates: start: 20151120, end: 20151127
  6. CLONIDINE HCL (CATAPRES) [Concomitant]
  7. SULFAMETHOXAZOLE-TRIMETHOPRIM DS [Concomitant]
  8. EVEROLIMUS 1.5 MG [Suspect]
     Active Substance: EVEROLIMUS
     Indication: RENAL TRANSPLANT
     Route: 048
     Dates: start: 20151120, end: 20151126
  9. AMLODIPINE [Concomitant]
     Active Substance: AMLODIPINE BESYLATE
  10. ASPIRIN. [Concomitant]
     Active Substance: ASPIRIN
  11. BISACODYL. [Concomitant]
     Active Substance: BISACODYL
  12. HYDROMORPHONE [Concomitant]
     Active Substance: HYDROMORPHONE
  13. PREDNISONE. [Concomitant]
     Active Substance: PREDNISONE
  14. EVEROLIMUS 1.5 MG [Suspect]
     Active Substance: EVEROLIMUS
     Indication: IMMUNOSUPPRESSION
     Route: 048
     Dates: start: 20151120, end: 20151126
  15. TACROLIMUS 0.5 [Suspect]
     Active Substance: TACROLIMUS
     Indication: IMMUNOSUPPRESSION
     Route: 048
     Dates: start: 20151120, end: 20151127
  16. VALGANCICLOVIR (VALCYTE) [Concomitant]
  17. BELATACEPT [Concomitant]
     Active Substance: BELATACEPT

REACTIONS (12)
  - Haematoma [None]
  - Blood lactate dehydrogenase increased [None]
  - Thrombosis [None]
  - Thrombotic microangiopathy [None]
  - Post procedural complication [None]
  - Thrombocytopenia [None]
  - Renal aneurysm [None]
  - Renal artery dissection [None]
  - Red blood cell schistocytes present [None]
  - Ischaemia [None]
  - Anaemia [None]
  - Renal transplant [None]

NARRATIVE: CASE EVENT DATE: 20151124
